FAERS Safety Report 20236320 (Version 6)
Quarter: 2023Q4

REPORT INFORMATION
  Report Type: Report from Study
  Country: CA (occurrence: CA)
  Receive Date: 20211228
  Receipt Date: 20231117
  Transmission Date: 20240110
  Serious: Yes (Other)
  Sender: FDA-Public Use
  Company Number: CA-NOVARTISPH-NVSC2021CA292035

PATIENT
  Age: 55 Year
  Sex: Female

DRUGS (4)
  1. KESIMPTA [Suspect]
     Active Substance: OFATUMUMAB
     Indication: Relapsing-remitting multiple sclerosis
     Dosage: UNK
     Route: 058
     Dates: start: 20211216
  2. KESIMPTA [Suspect]
     Active Substance: OFATUMUMAB
     Dosage: UNK (LOADING DOSE- FIRST DOSE)
     Route: 065
  3. KESIMPTA [Suspect]
     Active Substance: OFATUMUMAB
     Dosage: UNK (3RD LOADING DOSE)
     Route: 065
  4. KESIMPTA [Suspect]
     Active Substance: OFATUMUMAB
     Dosage: UNK
     Route: 065
     Dates: end: 20220409

REACTIONS (20)
  - Multiple sclerosis relapse [Unknown]
  - Presyncope [Recovering/Resolving]
  - Red blood cell count decreased [Recovered/Resolved]
  - Sluggishness [Recovered/Resolved]
  - Urinary tract infection [Unknown]
  - Cognitive disorder [Unknown]
  - Confusional state [Unknown]
  - Memory impairment [Unknown]
  - Oropharyngeal pain [Recovered/Resolved]
  - Fatigue [Unknown]
  - Malaise [Recovered/Resolved]
  - Sinus congestion [Recovered/Resolved]
  - Arthralgia [Unknown]
  - Chills [Unknown]
  - Body temperature increased [Recovering/Resolving]
  - Asthenia [Unknown]
  - Pyrexia [Unknown]
  - Product quality issue [Unknown]
  - Intentional dose omission [Unknown]
  - Therapeutic product effect incomplete [Unknown]

NARRATIVE: CASE EVENT DATE: 20211216
